FAERS Safety Report 17089295 (Version 1)
Quarter: 2019Q4

REPORT INFORMATION
  Report Type: Spontaneous
  Country: DE (occurrence: DE)
  Receive Date: 20191128
  Receipt Date: 20191128
  Transmission Date: 20200122
  Serious: Yes (Hospitalization)
  Sender: FDA-Public Use
  Company Number: NVSC2019DE044614

PATIENT
  Age: 49 Year
  Sex: Male
  Weight: 92 kg

DRUGS (3)
  1. QUETIAPINE. [Suspect]
     Active Substance: QUETIAPINE
     Indication: MENTAL DISORDER
     Dosage: 100 MG, QD (2X1)
     Route: 048
     Dates: start: 20190815
  2. BRIVIACT [Suspect]
     Active Substance: BRIVARACETAM
     Indication: EPILEPSY
     Dosage: 200 MG, QD (2X1VERSCHIEDENE CHARGEN)
     Route: 048
     Dates: start: 20190810
  3. VIMPAT [Concomitant]
     Active Substance: LACOSAMIDE
     Indication: EPILEPSY
     Dosage: 400 MG, QD (2X1)
     Route: 065
     Dates: start: 2013

REACTIONS (4)
  - Peripheral swelling [Not Recovered/Not Resolved]
  - Alopecia [Recovered/Resolved]
  - Erythema [Not Recovered/Not Resolved]
  - Rash [Not Recovered/Not Resolved]

NARRATIVE: CASE EVENT DATE: 20190820
